FAERS Safety Report 10363574 (Version 2)
Quarter: 2015Q1

REPORT INFORMATION
  Report Type: Spontaneous
  Country: AU (occurrence: AU)
  Receive Date: 20140805
  Receipt Date: 20150326
  Transmission Date: 20150720
  Serious: Yes (Hospitalization, Disabling, Other)
  Sender: FDA-Public Use
  Company Number: AU-ALEXION PHARMACEUTICALS INC.-A201402962

PATIENT

DRUGS (1)
  1. SOLIRIS [Suspect]
     Active Substance: ECULIZUMAB
     Indication: PAROXYSMAL NOCTURNAL HAEMOGLOBINURIA
     Dosage: 900 MG, Q2W
     Route: 042
     Dates: start: 201312

REACTIONS (19)
  - Pyrexia [Recovering/Resolving]
  - Neck pain [Recovering/Resolving]
  - Fluid retention [Recovering/Resolving]
  - Deafness [Not Recovered/Not Resolved]
  - Vertigo [Recovering/Resolving]
  - Chills [Recovering/Resolving]
  - Vomiting [Recovering/Resolving]
  - Viral infection [Unknown]
  - Device kink [Unknown]
  - Dizziness [Recovering/Resolving]
  - Blood lactate dehydrogenase increased [Unknown]
  - Nausea [Recovering/Resolving]
  - Bacterial infection [Unknown]
  - Tinnitus [Recovering/Resolving]
  - Abdominal pain [Recovering/Resolving]
  - Nasopharyngitis [Recovering/Resolving]
  - Haemoglobinuria [Recovered/Resolved]
  - Jaundice [Recovering/Resolving]
  - Ocular icterus [Unknown]

NARRATIVE: CASE EVENT DATE: 201407
